FAERS Safety Report 8159682-3 (Version None)
Quarter: 2012Q1

REPORT INFORMATION
  Report Type: 
  Country: None (occurrence: None)
  Receive Date: 20120223
  Receipt Date: 20120215
  Transmission Date: 20120608
  Serious: Yes (Hospitalization)
  Sender: FDA-Public Use
  Company Number: FR-ROCHE-798949

PATIENT
  Sex: Male
  Weight: 27 kg

DRUGS (9)
  1. VISMODEGIB [Suspect]
     Route: 048
     Dates: start: 20110808, end: 20110816
  2. FLUOXETINE [Concomitant]
  3. VITAMIN D [Concomitant]
     Dates: start: 20110728
  4. VISMODEGIB [Suspect]
     Indication: BASAL CELL CARCINOMA
     Dosage: LAST DOSE PRIOR TO SAE WAS 16 AUG 2011. TEMPORARILY INTERRUPTED DOSAGE FORM UNKNOWN
     Route: 048
     Dates: start: 20110705, end: 20110802
  5. TEGRETOL [Concomitant]
  6. ATORVASTATIN [Concomitant]
  7. HYDROCORTISONE [Concomitant]
  8. DESMOPRESSIN ACETATE [Concomitant]
  9. LEVOTHYROXINE SODIUM [Concomitant]

REACTIONS (1)
  - INFECTION [None]
